APPROVED DRUG PRODUCT: POMALIDOMIDE
Active Ingredient: POMALIDOMIDE
Strength: 4MG
Dosage Form/Route: CAPSULE;ORAL
Application: A210249 | Product #004 | TE Code: AB
Applicant: EUGIA PHARMA SPECIALITIES LTD
Approved: Oct 30, 2020 | RLD: No | RS: No | Type: RX